FAERS Safety Report 13966035 (Version 2)
Quarter: 2017Q3

REPORT INFORMATION
  Report Type: Spontaneous
  Country: FR (occurrence: FR)
  Receive Date: 20170913
  Receipt Date: 20170918
  Transmission Date: 20171128
  Serious: Yes (Other)
  Sender: FDA-Public Use
  Company Number: FR-009507513-1709FRA004174

PATIENT
  Age: 52 Year
  Sex: Female

DRUGS (2)
  1. ATORVASTATIN [Suspect]
     Active Substance: ATORVASTATIN
     Indication: ARTERITIS
     Dosage: 1 DF, QD
     Route: 048
     Dates: start: 200704, end: 201704
  2. EZETROL [Suspect]
     Active Substance: EZETIMIBE
     Indication: ARTERITIS
     Dosage: 1 DF, QD
     Route: 048
     Dates: start: 201704, end: 20170523

REACTIONS (4)
  - Malaise [Recovered/Resolved]
  - Weight increased [Recovering/Resolving]
  - Blood creatine phosphokinase increased [Recovering/Resolving]
  - Pain in extremity [Recovered/Resolved]

NARRATIVE: CASE EVENT DATE: 201112
